FAERS Safety Report 15766564 (Version 5)
Quarter: 2019Q1

REPORT INFORMATION
  Report Type: Spontaneous
  Country: US (occurrence: US)
  Receive Date: 20181227
  Receipt Date: 20190124
  Transmission Date: 20190417
  Serious: Yes (Other)
  Sender: FDA-Public Use
  Company Number: US-PFIZER INC-2018492721

PATIENT
  Age: 80 Year
  Sex: Female
  Weight: 56.69 kg

DRUGS (7)
  1. DIAZEPAM. [Suspect]
     Active Substance: DIAZEPAM
     Indication: ANXIETY
     Dosage: 2.5 MG, UNK
     Dates: start: 1978
  2. DIAZEPAM. [Suspect]
     Active Substance: DIAZEPAM
     Dosage: 130 MG, DAILY
  3. DIAZEPAM. [Suspect]
     Active Substance: DIAZEPAM
     Dosage: 5 MG, UNK
  4. DIAZEPAM. [Suspect]
     Active Substance: DIAZEPAM
     Indication: EPSTEIN-BARR VIRUS INFECTION
     Dosage: 2.5 MG, UNK
  5. ALDACTONE [Concomitant]
     Active Substance: SPIRONOLACTONE
     Indication: STIFF PERSON SYNDROME
     Dosage: 12.5 MG, 2X/DAY
     Route: 048
  6. DIAZEPAM. [Suspect]
     Active Substance: DIAZEPAM
     Indication: STIFF PERSON SYNDROME
     Dosage: 130MG TO 140MG, UNK
  7. MAGNESIUM [Concomitant]
     Active Substance: MAGNESIUM
     Dosage: UNK

REACTIONS (6)
  - Pain [Unknown]
  - Drug ineffective [Unknown]
  - Drug dependence [Unknown]
  - Constipation [Unknown]
  - Scoliosis [Unknown]
  - Malaise [Unknown]
